FAERS Safety Report 20572234 (Version 1)
Quarter: 2022Q1

REPORT INFORMATION
  Report Type: Spontaneous
  Country: IN (occurrence: IN)
  Receive Date: 20220309
  Receipt Date: 20220309
  Transmission Date: 20220423
  Serious: Yes (Death, Hospitalization, Other)
  Sender: FDA-Public Use
  Company Number: IN-GLAXOSMITHKLINE-IN2022GSK043455

PATIENT
  Age: 35 Year
  Sex: Male

DRUGS (2)
  1. PREDNISOLONE [Suspect]
     Active Substance: PREDNISOLONE
     Indication: Coeliac disease
     Dosage: UNK
  2. ACYCLOVIR [Suspect]
     Active Substance: ACYCLOVIR
     Indication: Disseminated varicella
     Dosage: UNK
     Route: 042

REACTIONS (18)
  - Disseminated varicella [Fatal]
  - Varicella zoster pneumonia [Fatal]
  - Pyrexia [Unknown]
  - Rash pruritic [Unknown]
  - Cough [Unknown]
  - Dyspnoea at rest [Unknown]
  - Rash papular [Unknown]
  - Rash pustular [Unknown]
  - Blister [Unknown]
  - Rales [Unknown]
  - Pulmonary mass [Unknown]
  - Lung consolidation [Unknown]
  - Lung infiltration [Unknown]
  - Acute respiratory distress syndrome [Fatal]
  - Condition aggravated [Fatal]
  - Illness [Unknown]
  - Immunosuppression [Unknown]
  - Drug ineffective [Unknown]
